FAERS Safety Report 9454501 (Version 4)
Quarter: 2014Q1

REPORT INFORMATION
  Report Type: Spontaneous
  Country: US (occurrence: None)
  Receive Date: 20130808
  Receipt Date: 20140225
  Transmission Date: 20141002
  Serious: Yes (Hospitalization, Other)
  Sender: FDA-Public Use
  Company Number: 2012US000962

PATIENT
  Age: 55 Year
  Sex: Female
  Weight: 59.7 kg

DRUGS (21)
  1. PONATINIB (AP24534) TABLET [Suspect]
     Indication: CHRONIC MYELOID LEUKAEMIA
     Route: 048
     Dates: start: 20121031, end: 20121105
  2. PREDNISOLONE (PREDNISOLONE ACETATE) [Concomitant]
  3. LIPITOR (ATORVASTATIN CALCIUM) [Concomitant]
  4. COREG (CARVEDILOL) [Concomitant]
  5. CASPOFUNGIN (CASPOFUNGIN) [Concomitant]
  6. CEFEPIME (HYDROCHLORIDE) [Concomitant]
  7. ENALAPRIL (ENALAPRIL MALEATE) [Concomitant]
  8. PEPCID (FAMOTIDINE) [Concomitant]
  9. LASIX (FUROSEMIDE SODIUM) [Concomitant]
  10. AVELOX (MOXIFLOXACIN HYDROCHLORIDE) [Concomitant]
  11. PENTAMIDINE (PENTAMIDINE ISETHIONATE) [Concomitant]
  12. NOXAFIL (POSACONAZOLE) [Concomitant]
  13. TACROLIMUS (TACROLIMUS) [Concomitant]
  14. VALCYTE (VALGANCICLOVIR HYDROCHLORIDE) (VALGANCICLOVIR HYDROCHLORIDE) [Concomitant]
  15. LOMOTIL (ATROPINE SULFATE, DIPHENOXYLATE HYDROCHLORIDE) [Concomitant]
  16. LACTULOSE (LACTULOSE) [Concomitant]
  17. IMODIUM (LOPERAMIDE HYDROCHLORIDE) [Concomitant]
  18. ZOFRAN (ONDANSETRON HYDROCHLORIDE) [Concomitant]
  19. OXYCODONE (OXYCODONE) [Concomitant]
  20. SENOKOT-S (DOCUSATE SODIUM, SENNA ALEXANDRINA) [Concomitant]
  21. ULTRAM (TRAMADOL HYDROCHLORIDE) [Concomitant]

REACTIONS (17)
  - Groin pain [None]
  - Pain in extremity [None]
  - Lobar pneumonia [None]
  - Pleural effusion [None]
  - Pericardial effusion [None]
  - Splenomegaly [None]
  - Splenic infarction [None]
  - Thrombocytopenia [None]
  - Cardiac failure congestive [None]
  - Cardiomyopathy [None]
  - Myocarditis [None]
  - Cytomegalovirus infection [None]
  - Transfusion related complication [None]
  - Chronic myeloid leukaemia [None]
  - Malignant neoplasm progression [None]
  - Cardiomegaly [None]
  - Disease progression [None]
